FAERS Safety Report 16916300 (Version 2)
Quarter: 2019Q4

REPORT INFORMATION
  Report Type: Spontaneous
  Country: IT (occurrence: IT)
  Receive Date: 20191014
  Receipt Date: 20191017
  Transmission Date: 20200122
  Serious: Yes (Death)
  Sender: FDA-Public Use
  Company Number: IT-009507513-1910ITA006615

PATIENT
  Age: 68 Year
  Sex: Female
  Weight: 88 kg

DRUGS (5)
  1. TANDEMACT [Concomitant]
     Active Substance: GLIMEPIRIDE\PIOGLITAZONE HYDROCHLORIDE
     Dosage: 1 DOSAGE FORM
     Route: 048
  2. CONGESCOR [Concomitant]
     Active Substance: BISOPROLOL
     Dosage: 2.5 MILLIGRAM
     Route: 048
  3. METFORALMILLE [Concomitant]
     Active Substance: METFORMIN HYDROCHLORIDE
     Dosage: 3 GRAM
     Route: 048
  4. KEYTRUDA [Suspect]
     Active Substance: PEMBROLIZUMAB
     Indication: LUNG CANCER METASTATIC
     Dosage: 200 MILLIGRAM, 1 CYCLICAL
     Route: 042
     Dates: start: 20190703, end: 20190724
  5. TRIATEC (ACETAMINOPHEN (+) CAFFEINE, CITRATED (+) CODEINE PHOSPHATE) [Concomitant]
     Active Substance: ACETAMINOPHEN\CAFFEINE\CODEINE PHOSPHATE
     Dosage: 5 MILLIGRAM
     Route: 048

REACTIONS (2)
  - Respiratory failure [Fatal]
  - Myasthenic syndrome [Fatal]

NARRATIVE: CASE EVENT DATE: 20190812
